FAERS Safety Report 8491811 (Version 3)
Quarter: 2013Q1

REPORT INFORMATION
  Report Type: Spontaneous
  Country: BR (occurrence: BR)
  Receive Date: 20120403
  Receipt Date: 20130104
  Transmission Date: 20140127
  Serious: Yes (Other)
  Sender: FDA-Public Use
  Company Number: BR-AMGEN-BRASP2012019747

PATIENT
  Age: 33 Year
  Sex: Female
  Weight: 62 kg

DRUGS (3)
  1. ENBREL [Suspect]
     Indication: ANKYLOSING SPONDYLITIS
     Dosage: 50 MG, QWK
     Dates: start: 201110, end: 201211
  2. ATROVERAN                          /01607801/ [Concomitant]
     Indication: ABDOMINAL PAIN
     Dosage: UNK
  3. NORDETTE [Concomitant]
     Indication: CONTRACEPTIVE CAP
     Dosage: UNK

REACTIONS (12)
  - Abdominal discomfort [Not Recovered/Not Resolved]
  - Nausea [Not Recovered/Not Resolved]
  - Dizziness [Unknown]
  - Tremor [Unknown]
  - Pain [Unknown]
  - Vulvovaginal injury [Not Recovered/Not Resolved]
  - Injection site pustule [Unknown]
  - Injection site hypersensitivity [Unknown]
  - Injection site erythema [Unknown]
  - Injection site pruritus [Unknown]
  - Injection site irritation [Unknown]
  - Injection site discomfort [Not Recovered/Not Resolved]
